FAERS Safety Report 5357950-1 (Version None)
Quarter: 2007Q2

REPORT INFORMATION
  Report Type: 
  Country: None (occurrence: None)
  Receive Date: 20070530
  Receipt Date: 20061221
  Transmission Date: 20071010
  Serious: Yes (Other)
  Sender: FDA-Public Use
  Company Number: US200612004116

PATIENT
  Age: 41 Year
  Sex: Male

DRUGS (3)
  1. ZYPREXA [Suspect]
     Indication: ANXIETY
     Dosage: 20 MG
     Dates: start: 20030101, end: 20060501
  2. ZYPREXA [Suspect]
     Indication: ANXIETY
     Dosage: 20 MG
     Dates: start: 20061214
  3. CLONOPIN [Concomitant]

REACTIONS (2)
  - LOSS OF EMPLOYMENT [None]
  - WEIGHT INCREASED [None]
